FAERS Safety Report 25094498 (Version 1)
Quarter: 2025Q1

REPORT INFORMATION
  Report Type: Spontaneous
  Country: US (occurrence: US)
  Receive Date: 20250319
  Receipt Date: 20250319
  Transmission Date: 20250408
  Serious: Yes (Other)
  Sender: MYLAN
  Company Number: US-MYLANLABS-2025M1023065

PATIENT
  Age: 62 Year
  Sex: Male

DRUGS (32)
  1. OXALIPLATIN [Suspect]
     Active Substance: OXALIPLATIN
     Indication: Pancreatic carcinoma metastatic
  2. OXALIPLATIN [Suspect]
     Active Substance: OXALIPLATIN
     Route: 065
  3. OXALIPLATIN [Suspect]
     Active Substance: OXALIPLATIN
     Route: 065
  4. OXALIPLATIN [Suspect]
     Active Substance: OXALIPLATIN
  5. LEUCOVORIN [Suspect]
     Active Substance: LEUCOVORIN\LEUCOVORIN CALCIUM
     Indication: Pancreatic carcinoma metastatic
  6. LEUCOVORIN [Suspect]
     Active Substance: LEUCOVORIN\LEUCOVORIN CALCIUM
     Route: 065
  7. LEUCOVORIN [Suspect]
     Active Substance: LEUCOVORIN\LEUCOVORIN CALCIUM
     Route: 065
  8. LEUCOVORIN [Suspect]
     Active Substance: LEUCOVORIN\LEUCOVORIN CALCIUM
  9. GEMCITABINE [Suspect]
     Active Substance: GEMCITABINE
     Indication: Pancreatic carcinoma metastatic
  10. GEMCITABINE [Suspect]
     Active Substance: GEMCITABINE
     Route: 065
  11. GEMCITABINE [Suspect]
     Active Substance: GEMCITABINE
     Route: 065
  12. GEMCITABINE [Suspect]
     Active Substance: GEMCITABINE
  13. FLUOROURACIL [Suspect]
     Active Substance: FLUOROURACIL
     Indication: Pancreatic carcinoma metastatic
  14. FLUOROURACIL [Suspect]
     Active Substance: FLUOROURACIL
     Route: 065
  15. FLUOROURACIL [Suspect]
     Active Substance: FLUOROURACIL
     Route: 065
  16. FLUOROURACIL [Suspect]
     Active Substance: FLUOROURACIL
  17. IRINOTECAN [Suspect]
     Active Substance: IRINOTECAN
     Indication: Pancreatic carcinoma metastatic
  18. IRINOTECAN [Suspect]
     Active Substance: IRINOTECAN
     Route: 065
  19. IRINOTECAN [Suspect]
     Active Substance: IRINOTECAN
     Route: 065
  20. IRINOTECAN [Suspect]
     Active Substance: IRINOTECAN
  21. PACLITAXEL [Suspect]
     Active Substance: PACLITAXEL
     Indication: Pancreatic carcinoma metastatic
  22. PACLITAXEL [Suspect]
     Active Substance: PACLITAXEL
     Route: 065
  23. PACLITAXEL [Suspect]
     Active Substance: PACLITAXEL
     Route: 065
  24. PACLITAXEL [Suspect]
     Active Substance: PACLITAXEL
  25. ALDOXORUBICIN [Suspect]
     Active Substance: ALDOXORUBICIN
     Indication: Pancreatic carcinoma metastatic
  26. ALDOXORUBICIN [Suspect]
     Active Substance: ALDOXORUBICIN
     Route: 065
  27. ALDOXORUBICIN [Suspect]
     Active Substance: ALDOXORUBICIN
     Route: 065
  28. ALDOXORUBICIN [Suspect]
     Active Substance: ALDOXORUBICIN
  29. CYCLOPHOSPHAMIDE [Suspect]
     Active Substance: CYCLOPHOSPHAMIDE
     Indication: Pancreatic carcinoma metastatic
  30. CYCLOPHOSPHAMIDE [Suspect]
     Active Substance: CYCLOPHOSPHAMIDE
     Route: 065
  31. CYCLOPHOSPHAMIDE [Suspect]
     Active Substance: CYCLOPHOSPHAMIDE
     Route: 065
  32. CYCLOPHOSPHAMIDE [Suspect]
     Active Substance: CYCLOPHOSPHAMIDE

REACTIONS (4)
  - Drug ineffective [Unknown]
  - Disease progression [Unknown]
  - Neuropathy peripheral [Unknown]
  - Diarrhoea [Unknown]
